FAERS Safety Report 9418259 (Version 1)
Quarter: 2013Q3

REPORT INFORMATION
  Report Type: Spontaneous
  Country: US (occurrence: US)
  Receive Date: 20130724
  Receipt Date: 20130724
  Transmission Date: 20140515
  Serious: Yes (Other)
  Sender: FDA-Public Use
  Company Number: US-RB-056348-13

PATIENT
  Age: 43 Year
  Sex: Female

DRUGS (1)
  1. SUBOXONE TABLET [Suspect]
     Indication: DRUG DEPENDENCE
     Dosage: DOSING DETAILS UNKNOWN; SELF TAPER BY CUTTING TABLETS AND TAKING VARIOUS SIZES AND DOSES
     Route: 060
     Dates: start: 201006, end: 201102

REACTIONS (4)
  - Exposure during pregnancy [Recovered/Resolved]
  - Wrong technique in drug usage process [Recovered/Resolved]
  - Underdose [Recovered/Resolved]
  - Premature delivery [Recovered/Resolved]
